FAERS Safety Report 8396018-7 (Version None)
Quarter: 2012Q2

REPORT INFORMATION
  Report Type: 
  Country: None (occurrence: None)
  Receive Date: 20120530
  Receipt Date: 20120522
  Transmission Date: 20120825
  Serious: Yes (Congenital Anomaly)
  Sender: FDA-Public Use
  Company Number: TR-ROCHE-1032071

PATIENT
  Sex: Male
  Weight: 3.995 kg

DRUGS (3)
  1. LUCENTIS [Suspect]
     Route: 064
     Dates: start: 20101008
  2. LUCENTIS [Suspect]
     Indication: CHOROIDAL NEOVASCULARISATION
     Route: 064
     Dates: start: 20100721
  3. LUCENTIS [Suspect]
     Route: 064
     Dates: start: 20100828

REACTIONS (2)
  - FOETAL EXPOSURE DURING PREGNANCY [None]
  - VENTRICULAR SEPTAL DEFECT [None]
